FAERS Safety Report 6982635-5 (Version None)
Quarter: 2010Q3

REPORT INFORMATION
  Report Type: 
  Country: None (occurrence: None)
  Receive Date: 20100914
  Receipt Date: 20100216
  Transmission Date: 20110219
  Serious: Yes (Other)
  Sender: FDA-Public Use
  Company Number: US-PFIZER INC-2010022783

PATIENT
  Age: 58 Year
  Sex: Female
  Weight: 58.967 kg

DRUGS (1)
  1. LYRICA [Suspect]
     Indication: FIBROMYALGIA
     Dosage: UNK
     Dates: start: 20090101, end: 20090101

REACTIONS (4)
  - ADVERSE REACTION [None]
  - LOSS OF CONSCIOUSNESS [None]
  - PAIN [None]
  - POISONING [None]
